APPROVED DRUG PRODUCT: OLOPATADINE HYDROCHLORIDE
Active Ingredient: OLOPATADINE HYDROCHLORIDE
Strength: EQ 0.1% BASE
Dosage Form/Route: SOLUTION/DROPS;OPHTHALMIC
Application: A209282 | Product #001
Applicant: FDC LTD
Approved: Sep 26, 2019 | RLD: No | RS: No | Type: DISCN